FAERS Safety Report 9149491 (Version 1)
Quarter: 2013Q1

REPORT INFORMATION
  Report Type: Spontaneous
  Country: US (occurrence: None)
  Receive Date: 20130301
  Receipt Date: 20130301
  Transmission Date: 20140127
  Serious: Yes (Life-Threatening)
  Sender: FDA-Public Use
  Company Number: None

PATIENT
  Age: 60 Year
  Sex: Male
  Weight: 72.58 kg

DRUGS (2)
  1. ISONIAZID 300 MG X3 ONCE A WEEK UDL ROCKFORD UM36 [Suspect]
     Indication: LATENT TUBERCULOSIS
     Dosage: 900 MG  Q WEEK  PO
     Route: 048
     Dates: start: 20130121, end: 20130216
  2. PRIFTIN 150 MG X6 ONCE A WEEK HO SANOFI AVENTIS [Suspect]
     Dosage: 900 MG  Q WEEK  PO
     Route: 048
     Dates: start: 20130121, end: 20130216

REACTIONS (6)
  - Headache [None]
  - Gastrooesophageal reflux disease [None]
  - Chromaturia [None]
  - Cough [None]
  - Jaundice [None]
  - Faeces pale [None]
